FAERS Safety Report 14016621 (Version 2)
Quarter: 2019Q1

REPORT INFORMATION
  Report Type: Report from Study
  Country: CA (occurrence: CA)
  Receive Date: 20170927
  Receipt Date: 20190202
  Transmission Date: 20190417
  Serious: Yes (Other)
  Sender: FDA-Public Use
  Company Number: PHHY2017CA140411

PATIENT
  Sex: Male

DRUGS (1)
  1. GILENYA [Suspect]
     Active Substance: FINGOLIMOD HYDROCHLORIDE
     Indication: PRODUCT USED FOR UNKNOWN INDICATION
     Dosage: UNK
     Route: 048
     Dates: start: 20160616

REACTIONS (6)
  - Skin laceration [Unknown]
  - General physical health deterioration [Not Recovered/Not Resolved]
  - Scar [Unknown]
  - Loss of consciousness [Unknown]
  - Expanded disability status scale score increased [Unknown]
  - Fall [Unknown]
